FAERS Safety Report 16656615 (Version 2)
Quarter: 2019Q3

REPORT INFORMATION
  Report Type: Spontaneous
  Country: US (occurrence: US)
  Receive Date: 20190801
  Receipt Date: 20190819
  Transmission Date: 20191004
  Serious: No
  Sender: FDA-Public Use
  Company Number: US-PFIZER INC-2019326159

PATIENT
  Age: 60 Year
  Sex: Male
  Weight: 61.22 kg

DRUGS (1)
  1. VIAGRA [Suspect]
     Active Substance: SILDENAFIL CITRATE
     Indication: ERECTILE DYSFUNCTION
     Dosage: UNK (ONCE OR TWICE A WEEK)
     Dates: start: 201712

REACTIONS (2)
  - Confusional state [Unknown]
  - Expired product administered [Unknown]

NARRATIVE: CASE EVENT DATE: 201712
